FAERS Safety Report 8784415 (Version 1)
Quarter: 2012Q4

REPORT INFORMATION
  Report Type: 
  Country: US (occurrence: US)
  Receive Date: 20120910
  Receipt Date: 20120910
  Transmission Date: 20130627
  Serious: Yes (Other)
  Sender: FDA-Public Use
  Company Number: US-PFIZER INC-2012221472

PATIENT
  Age: 73 Year
  Sex: Female
  Weight: 94.33 kg

DRUGS (1)
  1. PREPARATION H MEDICATED WIPES [Suspect]
     Indication: HAEMORRHOIDS
     Dosage: unknown dose daily or two times a day
     Dates: start: 201201

REACTIONS (3)
  - Diverticulitis [Recovered/Resolved]
  - Burning sensation [Recovered/Resolved]
  - Vulvovaginal discomfort [Recovered/Resolved]
